FAERS Safety Report 18263167 (Version 1)
Quarter: 2020Q3

REPORT INFORMATION
  Report Type: Spontaneous
  Country: PE (occurrence: PE)
  Receive Date: 20200914
  Receipt Date: 20200914
  Transmission Date: 20201103
  Serious: Yes (Other)
  Sender: FDA-Public Use
  Company Number: PE-GLAXOSMITHKLINE-PE2020GSK183420

PATIENT
  Sex: Female
  Weight: 3.4 kg

DRUGS (5)
  1. RANITIDINE. [Suspect]
     Active Substance: RANITIDINE
     Indication: MUSCLE SPASMS
     Dosage: 50 MG
     Route: 064
  2. SCOPOLAMINE BUTYLBROMIDE [Suspect]
     Active Substance: SCOPOLAMINE
     Indication: MUSCLE SPASMS
     Dosage: 20 MG/ML
     Route: 064
  3. METAMIZOLE SODIUM [Suspect]
     Active Substance: METAMIZOLE SODIUM
     Indication: ANALGESIC THERAPY
     Dosage: 1G/2 ML
     Route: 064
  4. METAMIZOLE SODIUM [Suspect]
     Active Substance: METAMIZOLE SODIUM
     Indication: MUSCLE SPASMS
  5. 0.9 % SODIUM CHLORIDE [Suspect]
     Active Substance: SODIUM CHLORIDE
     Indication: DEHYDRATION
     Dosage: 1 L
     Route: 064

REACTIONS (5)
  - Bradycardia foetal [Unknown]
  - Premature baby [Unknown]
  - Foetal exposure during pregnancy [Unknown]
  - Foetal distress syndrome [Unknown]
  - Foetal arrhythmia [Unknown]
